FAERS Safety Report 16975679 (Version 1)
Quarter: 2019Q4

REPORT INFORMATION
  Report Type: Spontaneous
  Country: US (occurrence: US)
  Receive Date: 20191030
  Receipt Date: 20191030
  Transmission Date: 20200122
  Serious: No
  Sender: FDA-Public Use
  Company Number: US-COVIS PHARMA B.V.-2019COV00150

PATIENT
  Age: 62 Year
  Sex: Female

DRUGS (2)
  1. OMNARIS [Suspect]
     Active Substance: CICLESONIDE
     Dosage: UNK
     Dates: start: 2010, end: 20190604
  2. METOPROLOL. [Suspect]
     Active Substance: METOPROLOL

REACTIONS (50)
  - Nausea [Not Recovered/Not Resolved]
  - Frequent bowel movements [Not Recovered/Not Resolved]
  - Intentional underdose [Not Recovered/Not Resolved]
  - Limb discomfort [Not Recovered/Not Resolved]
  - Panic attack [Unknown]
  - Dyspnoea [Unknown]
  - Dehydration [Unknown]
  - Nerve compression [Unknown]
  - Anxiety [Unknown]
  - Neurological symptom [Recovering/Resolving]
  - Dizziness [Not Recovered/Not Resolved]
  - Weight decreased [Not Recovered/Not Resolved]
  - Strabismus [Recovered/Resolved]
  - Eye pain [Not Recovered/Not Resolved]
  - Therapeutic product effect decreased [Not Recovered/Not Resolved]
  - Intervertebral disc disorder [Not Recovered/Not Resolved]
  - Spinal disorder [Unknown]
  - Nasal congestion [Unknown]
  - Respiration abnormal [Not Recovered/Not Resolved]
  - Bone density decreased [Not Recovered/Not Resolved]
  - Skin irritation [Recovered/Resolved]
  - Withdrawal syndrome [Unknown]
  - Unevaluable event [Not Recovered/Not Resolved]
  - Decreased appetite [Not Recovered/Not Resolved]
  - Rib deformity [Not Recovered/Not Resolved]
  - Vasodilatation [Unknown]
  - Dry mouth [Unknown]
  - Migraine [Not Recovered/Not Resolved]
  - Dyspepsia [Not Recovered/Not Resolved]
  - Palpitations [Not Recovered/Not Resolved]
  - Tremor [Not Recovered/Not Resolved]
  - Energy increased [Unknown]
  - Erythema [Recovered/Resolved]
  - Sensitive skin [Recovered/Resolved]
  - Muscular weakness [Not Recovered/Not Resolved]
  - Weight increased [Recovered/Resolved]
  - Pollakiuria [Not Recovered/Not Resolved]
  - Hunger [Not Recovered/Not Resolved]
  - Asthma [Not Recovered/Not Resolved]
  - Back disorder [Not Recovered/Not Resolved]
  - Skin atrophy [Not Recovered/Not Resolved]
  - Drug ineffective [Not Recovered/Not Resolved]
  - Nausea [Unknown]
  - Hyperventilation [Unknown]
  - Hiatus hernia [Recovered/Resolved]
  - Flatulence [Not Recovered/Not Resolved]
  - Muscle spasms [Not Recovered/Not Resolved]
  - Vein disorder [Not Recovered/Not Resolved]
  - Arthropathy [Unknown]
  - Drug interaction [Not Recovered/Not Resolved]

NARRATIVE: CASE EVENT DATE: 2019
